FAERS Safety Report 12845558 (Version 1)
Quarter: 2016Q4

REPORT INFORMATION
  Report Type: Spontaneous
  Country: US (occurrence: US)
  Receive Date: 20161013
  Receipt Date: 20161013
  Transmission Date: 20170207
  Serious: No
  Sender: FDA-Public Use
  Company Number: US-JAZZ-2016-US-013801

PATIENT
  Sex: Female

DRUGS (25)
  1. BIOTIN [Concomitant]
     Active Substance: BIOTIN
  2. VIIBRYD [Concomitant]
     Active Substance: VILAZODONE HYDROCHLORIDE
  3. XYREM [Suspect]
     Active Substance: SODIUM OXYBATE
     Dosage: DOSE ADJSUTMENTS
     Route: 048
     Dates: start: 201405, end: 201407
  4. XYREM [Suspect]
     Active Substance: SODIUM OXYBATE
     Dosage: 4.5 G, BID
     Route: 048
     Dates: start: 201407
  5. ZENCHENT [Concomitant]
     Active Substance: ETHINYL ESTRADIOL\NORETHINDRONE
  6. ZARAH [Concomitant]
     Active Substance: DROSPIRENONE\ETHINYL ESTRADIOL
  7. GAS-X [Concomitant]
     Active Substance: DIMETHICONE
  8. ZANTAC [Concomitant]
     Active Substance: RANITIDINE HYDROCHLORIDE
  9. FLUTICASONE PROPIONATE. [Concomitant]
     Active Substance: FLUTICASONE PROPIONATE
  10. CRANBERRY. [Concomitant]
     Active Substance: CRANBERRY
  11. ZYRTEC [Concomitant]
     Active Substance: CETIRIZINE HYDROCHLORIDE
  12. MYLANTA [Concomitant]
     Active Substance: ALUMINUM HYDROXIDE\DIMETHICONE\MAGNESIUM HYDROXIDE
  13. TUMS [Concomitant]
     Active Substance: CALCIUM CARBONATE
  14. FLONASE [Concomitant]
     Active Substance: FLUTICASONE PROPIONATE
  15. ADVIL [Concomitant]
     Active Substance: IBUPROFEN
  16. PEPTO-BISMOL [Concomitant]
     Active Substance: BISMUTH SUBSALICYLATE
  17. NUVIGIL [Concomitant]
     Active Substance: ARMODAFINIL
  18. XYREM [Suspect]
     Active Substance: SODIUM OXYBATE
     Indication: NARCOLEPSY
     Dosage: 2.25 G, BID
     Route: 048
     Dates: start: 201404, end: 201405
  19. LACTAID [Concomitant]
     Active Substance: LACTASE
  20. ADDERALL [Concomitant]
     Active Substance: AMPHETAMINE ASPARTATE\AMPHETAMINE SULFATE\DEXTROAMPHETAMINE SACCHARATE\DEXTROAMPHETAMINE SULFATE
  21. BALZIVA [Concomitant]
     Active Substance: ETHINYL ESTRADIOL\NORETHINDRONE
  22. FEXOFENADINE HCL [Concomitant]
     Active Substance: FEXOFENADINE HYDROCHLORIDE
  23. ATIVAN [Concomitant]
     Active Substance: LORAZEPAM
  24. MAALOX ANTACID [Concomitant]
     Active Substance: ALUMINUM HYDROXIDE\DIMETHICONE\MAGNESIUM HYDROXIDE
  25. WELLBUTRIN [Concomitant]
     Active Substance: BUPROPION HYDROCHLORIDE

REACTIONS (4)
  - Allergy to animal [Unknown]
  - Unevaluable event [Unknown]
  - Sinus disorder [Unknown]
  - Mycotic allergy [Unknown]
